FAERS Safety Report 24269388 (Version 1)
Quarter: 2024Q3

REPORT INFORMATION
  Report Type: Spontaneous
  Country: RU (occurrence: RU)
  Receive Date: 20240830
  Receipt Date: 20240830
  Transmission Date: 20241016
  Serious: Yes (Other)
  Sender: DR REDDYS
  Company Number: RU-RZN-SPO/RUS/24/0012213

PATIENT
  Age: 45 Year
  Sex: Male

DRUGS (19)
  1. CETIRIZINE [Suspect]
     Active Substance: CETIRIZINE HYDROCHLORIDE
     Indication: Dermatitis atopic
  2. CETIRIZINE [Suspect]
     Active Substance: CETIRIZINE HYDROCHLORIDE
     Indication: Pyoderma
  3. MOMETASONE [Concomitant]
     Active Substance: MOMETASONE
     Indication: Dermatitis atopic
     Dosage: BID, FOR 12 DAYS
  4. MOMETASONE [Concomitant]
     Active Substance: MOMETASONE
     Indication: Pyoderma
  5. GENTAMICIN [Concomitant]
     Active Substance: GENTAMICIN
     Indication: Dermatitis atopic
     Dosage: BID, FOR 12 DAYS
  6. GENTAMICIN [Concomitant]
     Active Substance: GENTAMICIN
     Indication: Pyoderma
  7. DEXPANTHENOL [Concomitant]
     Active Substance: DEXPANTHENOL
     Indication: Dermatitis atopic
     Dosage: BID, FOR 12 DAYS
  8. DEXPANTHENOL [Concomitant]
     Active Substance: DEXPANTHENOL
     Indication: Pyoderma
  9. ECONAZOLE [Concomitant]
     Active Substance: ECONAZOLE
     Indication: Dermatitis atopic
     Dosage: 10.0 MG PER 1 G OF CREAM, BID, FOR 12 DAYS
  10. ECONAZOLE [Concomitant]
     Active Substance: ECONAZOLE
     Indication: Pyoderma
  11. ACETONE\BORIC ACID\RESORCINOL [Concomitant]
     Active Substance: ACETONE\BORIC ACID\RESORCINOL
     Indication: Dermatitis atopic
  12. ACETONE\BORIC ACID\RESORCINOL [Concomitant]
     Active Substance: ACETONE\BORIC ACID\RESORCINOL
     Indication: Pyoderma
  13. METHYLPREDNISOLONE ACEPONATE [Concomitant]
     Active Substance: METHYLPREDNISOLONE ACEPONATE
     Indication: Dermatitis atopic
  14. METHYLPREDNISOLONE ACEPONATE [Concomitant]
     Active Substance: METHYLPREDNISOLONE ACEPONATE
     Indication: Pyoderma
  15. BETADERM [Concomitant]
     Active Substance: BETAMETHASONE VALERATE
     Indication: Neurodermatitis
     Dosage: FOR 14 DAYS
  16. BETADERM [Concomitant]
     Active Substance: BETAMETHASONE VALERATE
     Indication: Pyoderma
  17. Clovate [Concomitant]
     Indication: Lichenification
     Dosage: FOR 14 DAYS
  18. LEVOCETIRIZINE [Concomitant]
     Active Substance: LEVOCETIRIZINE
     Indication: Dermatitis atopic
     Dosage: 5 MG, ORALLY QD
     Route: 048
  19. LEVOCETIRIZINE [Concomitant]
     Active Substance: LEVOCETIRIZINE
     Indication: Pyoderma

REACTIONS (2)
  - Condition aggravated [Recovering/Resolving]
  - Drug ineffective for unapproved indication [Unknown]
